FAERS Safety Report 11916675 (Version 1)
Quarter: 2016Q1

REPORT INFORMATION
  Report Type: Spontaneous
  Country: US (occurrence: None)
  Receive Date: 20160113
  Receipt Date: 20160113
  Transmission Date: 20160526
  Serious: No
  Sender: FDA-Public Use
  Company Number: None

PATIENT
  Age: 37 Year
  Sex: Female
  Weight: 108.86 kg

DRUGS (4)
  1. AFRIN [Suspect]
     Active Substance: OXYMETAZOLINE
     Indication: RESPIRATORY TRACT INFECTION VIRAL
     Route: 045
     Dates: start: 20160110, end: 20160111
  2. ZYRTEC [Concomitant]
     Active Substance: CETIRIZINE HYDROCHLORIDE
  3. PLEXUS SLIM [Concomitant]
  4. GARLIC SUPPLEMENT [Concomitant]

REACTIONS (2)
  - Ageusia [None]
  - Anosmia [None]

NARRATIVE: CASE EVENT DATE: 20160110
